FAERS Safety Report 18312282 (Version 2)
Quarter: 2020Q4

REPORT INFORMATION
  Report Type: Spontaneous
  Country: ES (occurrence: ES)
  Receive Date: 20200925
  Receipt Date: 20201006
  Transmission Date: 20210113
  Serious: Yes (Hospitalization)
  Sender: FDA-Public Use
  Company Number: ES-MYLANLABS-2020M1081573

PATIENT
  Age: 42 Year
  Sex: Female

DRUGS (6)
  1. DEPAKINE                           /00228501/ [Interacting]
     Active Substance: VALPROIC ACID
     Indication: EPILEPSY
     Dosage: 500 MILLIGRAM, BID (500 MG, Q12H)
     Route: 048
     Dates: start: 20170425, end: 20200610
  2. LEPONEX [Suspect]
     Active Substance: CLOZAPINE
     Indication: SCHIZOPHRENIA
     Dosage: 50 MILLIGRAM, BID (50 MG,  (1/2-0-1/2))
     Route: 048
     Dates: start: 20191218
  3. SERTRALINE [Interacting]
     Active Substance: SERTRALINE HYDROCHLORIDE
     Indication: MAJOR DEPRESSION
     Dosage: 50 MILLIGRAM, QD (50 MG, Q24H)
     Route: 048
     Dates: start: 20170919
  4. DEPAKINE                           /00228501/ [Interacting]
     Active Substance: VALPROIC ACID
     Dosage: 750 MILLIGRAM, BID (750 MG, Q12H)
     Route: 048
     Dates: start: 20200611
  5. EUTIROX [Concomitant]
     Active Substance: LEVOTHYROXINE SODIUM
     Indication: HYPOTHYROIDISM
     Dosage: 75 MICROGRAM, QD (75 UG, Q24H)
     Route: 065
     Dates: start: 20190124
  6. TRILEPTAL [Interacting]
     Active Substance: OXCARBAZEPINE
     Indication: SCHIZOPHRENIA
     Dosage: 300 MILLIGRAM, BID (300 MG, Q12H)
     Route: 048
     Dates: start: 20190321

REACTIONS (2)
  - Inappropriate antidiuretic hormone secretion [Recovered/Resolved]
  - Drug interaction [Unknown]

NARRATIVE: CASE EVENT DATE: 20200625
